FAERS Safety Report 7675264-1 (Version None)
Quarter: 2011Q3

REPORT INFORMATION
  Report Type: 
  Country: None (occurrence: None)
  Receive Date: 20110810
  Receipt Date: 20110727
  Transmission Date: 20111222
  Serious: Yes (Hospitalization, Other)
  Sender: FDA-Public Use
  Company Number: CA-GENENTECH-303566

PATIENT
  Sex: Female
  Weight: 63.9 kg

DRUGS (2)
  1. AMPICILLIN SODIUM [Concomitant]
     Indication: PRODUCT USED FOR UNKNOWN INDICATION
  2. XOLAIR [Suspect]
     Indication: ASTHMA
     Dosage: 300 MG, 1/MONTH
     Route: 058
     Dates: start: 20060308

REACTIONS (3)
  - PNEUMONIA [None]
  - ASTHMATIC CRISIS [None]
  - HYPERSENSITIVITY [None]
